FAERS Safety Report 6119895-9 (Version None)
Quarter: 2009Q1

REPORT INFORMATION
  Report Type: 
  Country: None (occurrence: None)
  Receive Date: 20090316
  Receipt Date: 20090309
  Transmission Date: 20090719
  Serious: Yes (Other)
  Sender: FDA-Public Use
  Company Number: JP-ELI_LILLY_AND_COMPANY-JP200903002163

PATIENT
  Age: 12 Year

DRUGS (1)
  1. HUMATROPE [Suspect]
     Route: 058

REACTIONS (1)
  - BRAIN NEOPLASM [None]
